FAERS Safety Report 6524157-1 (Version None)
Quarter: 2009Q4

REPORT INFORMATION
  Report Type: 
  Country: None (occurrence: None)
  Receive Date: 20091231
  Receipt Date: 20091218
  Transmission Date: 20100525
  Serious: Yes (Other)
  Sender: FDA-Public Use
  Company Number: GB-TYCO HEALTHCARE/MALLINCKRODT-T200902336

PATIENT
  Age: 74 Year

DRUGS (12)
  1. MORPHINE [Suspect]
     Dosage: UNK
  2. CODEINE W/PARACETAMOL [Suspect]
     Dosage: GREATER THAN 8 TABS
  3. PENICILLAMINE [Concomitant]
     Dosage: UNK
  4. PREDNISOLONE [Concomitant]
     Dosage: UNK
  5. PROPRANOLOL [Concomitant]
     Dosage: UNK
  6. PIZOTIFEN [Concomitant]
     Dosage: UNK
  7. PROTHIADEN                         /00160401/ [Concomitant]
     Dosage: UNK
  8. VITAMIN A [Concomitant]
     Dosage: UNK
  9. VITAMIN B6 [Concomitant]
     Dosage: UNK
  10. VERAPAMIL [Concomitant]
     Dosage: UNK
  11. LISINOPRIL [Concomitant]
     Dosage: UNK
  12. BETAHISTINE [Concomitant]
     Dosage: UNK

REACTIONS (2)
  - DEAFNESS NEUROSENSORY [None]
  - MACROCYTOSIS [None]
